FAERS Safety Report 11588795 (Version 1)
Quarter: 2015Q4

REPORT INFORMATION
  Report Type: Spontaneous
  Country: SE (occurrence: SE)
  Receive Date: 20151002
  Receipt Date: 20151002
  Transmission Date: 20160304
  Serious: Yes (Congenital Anomaly)
  Sender: FDA-Public Use
  Company Number: SE-BIOGENIDEC-2015BI131274

PATIENT
  Sex: Female

DRUGS (1)
  1. TYSABRI [Suspect]
     Active Substance: NATALIZUMAB
     Indication: MATERNAL EXPOSURE TIMING UNSPECIFIED
     Route: 064
     Dates: end: 20150216

REACTIONS (4)
  - Congenital oesophageal anomaly [Unknown]
  - Foetal exposure during pregnancy [Recovered/Resolved]
  - Bronchial fistula [Unknown]
  - Gastric fistula [Unknown]
